FAERS Safety Report 5915331-3 (Version None)
Quarter: 2008Q4

REPORT INFORMATION
  Report Type: 
  Country: None (occurrence: None)
  Receive Date: 20081010
  Receipt Date: 20081006
  Transmission Date: 20090506
  Serious: Yes (Death)
  Sender: FDA-Public Use
  Company Number: US-SANOFI-SYNTHELABO-A03200803096

PATIENT
  Sex: Female
  Weight: 93 kg

DRUGS (26)
  1. PLAVIX [Suspect]
     Indication: CARDIAC FAILURE CONGESTIVE
     Route: 048
     Dates: start: 20060114
  2. PLAVIX [Suspect]
     Indication: PLATELET AGGREGATION INHIBITION
     Route: 048
     Dates: start: 20060114
  3. ASPIRIN [Concomitant]
     Indication: CARDIAC DISORDER
     Route: 048
  4. NITROGLYCERIN [Concomitant]
     Indication: CHEST PAIN
     Dosage: 0.4MG ONE Q5MIN X 3, AS NEEDED
     Route: 060
  5. DITROPAN XL [Concomitant]
     Indication: DRUG USE FOR UNKNOWN INDICATION
     Dosage: 5 MG DAILY X 2 WEEKS
     Route: 048
     Dates: start: 20080201
  6. METOPROLOL TARTRATE [Concomitant]
     Indication: CARDIAC DISORDER
     Route: 048
  7. DIGOXIN [Concomitant]
     Indication: CARDIAC DISORDER
     Route: 048
  8. HYDRALAZINE HCL [Concomitant]
     Indication: HYPERTENSION
     Dosage: 10MG EVERY 8 HOURS AT 5AM, 1PM, AND 9PM
     Route: 048
  9. LASIX [Concomitant]
     Indication: DIURETIC THERAPY
     Route: 048
  10. HUMULIN R [Concomitant]
     Indication: DIABETES MELLITUS
     Dosage: 10 UNITS IN AM, 4 UNITS IN PM
     Route: 058
  11. HUMULIN N [Concomitant]
     Indication: DIABETES MELLITUS
     Dosage: 16 UNITS AM, 6 UNITS PM
     Route: 058
  12. SYNTHROID [Concomitant]
     Indication: THYROID DISORDER
     Route: 048
  13. IMDUR [Concomitant]
     Indication: CARDIAC DISORDER
     Route: 048
  14. ZITHROMAX [Concomitant]
     Indication: DRUG USE FOR UNKNOWN INDICATION
     Dosage: AS DIRECTED
     Route: 048
     Dates: start: 20080301
  15. KEFLEX [Concomitant]
     Indication: URINARY TRACT INFECTION
     Dosage: 250MG, QID X 1 WEEK
     Route: 048
     Dates: start: 20080201
  16. SENNA-S [Concomitant]
     Indication: CONSTIPATION
     Dosage: ONE TABLET BID, AM AND PM, TWICE DAILY
     Route: 048
  17. RESTORIL [Concomitant]
     Indication: INSOMNIA
     Dosage: 15MG QHS PRN AND MAY REPEAT X 1 PRN
     Route: 048
  18. LORAZEPAM [Concomitant]
     Indication: ANXIETY
     Dosage: 0.5MG EVERY 4-6 HOURS, AS NEEDED
     Route: 048
  19. LORAZEPAM [Concomitant]
     Indication: DYSPNOEA
     Dosage: 0.5MG EVERY 4-6 HOURS, AS NEEDED
     Route: 048
  20. VALERIAN ROOT [Concomitant]
     Indication: PHYTOTHERAPY
     Route: 048
  21. ROXANOL [Concomitant]
     Indication: PAIN
     Dosage: 0.25CC - 1CC, EVERY 2 HOURS AS NEEDED
     Route: 048
  22. ROXANOL [Concomitant]
     Indication: DYSPNOEA
     Dosage: 0.25CC - 1CC, EVERY 2 HOURS AS NEEDED
     Route: 048
  23. ROXANOL [Concomitant]
     Indication: ANXIETY
     Dosage: 0.25CC - 1CC, EVERY 2 HOURS AS NEEDED
     Route: 048
  24. INTESTINAL FORMULA [Concomitant]
     Indication: PHYTOTHERAPY
     Dosage: 500MG 1-8 TABS, AS NEEDED
     Route: 048
  25. CAPSASIUM [Concomitant]
     Indication: MYALGIA
     Dosage: 520 MG 1-4 TIMES QD
     Route: 048
  26. CAYENE JC LIQUID [Concomitant]
     Indication: ANGINA PECTORIS
     Dosage: 1-2 DROPS, AS NEEDED
     Route: 048

REACTIONS (2)
  - CARDIAC FAILURE CONGESTIVE [None]
  - DYSPNOEA [None]
